FAERS Safety Report 26170679 (Version 1)
Quarter: 2025Q4

REPORT INFORMATION
  Report Type: Report from Study
  Country: US (occurrence: US)
  Receive Date: 20251217
  Receipt Date: 20251217
  Transmission Date: 20260117
  Serious: No
  Sender: MALLINCKRODT
  Company Number: US-MALLINCKRODT-MNK202508017

PATIENT
  Age: 57 Year
  Sex: Female

DRUGS (1)
  1. CORTICOTROPIN [Suspect]
     Active Substance: CORTICOTROPIN
     Indication: Rheumatoid arthritis
     Dosage: UNKNOWN
     Dates: start: 20251109

REACTIONS (1)
  - Injection site reaction [Recovered/Resolved]

NARRATIVE: CASE EVENT DATE: 20251101
